FAERS Safety Report 11844709 (Version 1)
Quarter: 2015Q4

REPORT INFORMATION
  Report Type: Spontaneous
  Country: US (occurrence: None)
  Receive Date: 20151216
  Receipt Date: 20151216
  Transmission Date: 20160305
  Serious: Yes (Disabling)
  Sender: FDA-Public Use
  Company Number: None

PATIENT
  Age: 44 Year
  Sex: Female
  Weight: 76.2 kg

DRUGS (4)
  1. ARMOUR THYROID [Concomitant]
     Active Substance: THYROID, PORCINE\THYROID, UNSPECIFIED
  2. 50+ ONE A DAY [Concomitant]
  3. TRAMADOL 50 MG [Suspect]
     Active Substance: TRAMADOL
     Indication: NECK PAIN
     Dosage: 2 EVERY 4 HOURS, AS NEEDED, TAKEN BY MOUTH
     Route: 048
     Dates: start: 20140423, end: 20151119
  4. TRAMADOL 50 MG [Suspect]
     Active Substance: TRAMADOL
     Indication: BACK PAIN
     Dosage: 2 EVERY 4 HOURS, AS NEEDED, TAKEN BY MOUTH
     Route: 048
     Dates: start: 20140423, end: 20151119

REACTIONS (5)
  - Paraesthesia [None]
  - Pain [None]
  - Burning sensation [None]
  - Palpitations [None]
  - Heart rate increased [None]

NARRATIVE: CASE EVENT DATE: 20151112
